FAERS Safety Report 20869171 (Version 1)
Quarter: 2022Q2

REPORT INFORMATION
  Report Type: Spontaneous
  Country: NZ (occurrence: NZ)
  Receive Date: 20220524
  Receipt Date: 20220524
  Transmission Date: 20220721
  Serious: Yes (Other)
  Sender: FDA-Public Use
  Company Number: NZ-CURRAX PHARMACEUTICALS LLC-NZ-2022CUR021657

PATIENT

DRUGS (15)
  1. CONTRAVE [Suspect]
     Active Substance: BUPROPION HYDROCHLORIDE\NALTREXONE HYDROCHLORIDE
     Indication: Weight control
     Dosage: 1 DOSAGE FORM, BID
     Route: 065
     Dates: start: 20220315, end: 20220415
  2. ATORVASTATIN [Suspect]
     Active Substance: ATORVASTATIN
     Indication: Product used for unknown indication
     Dosage: 10 MG
     Route: 065
  3. ATORVASTATIN [Suspect]
     Active Substance: ATORVASTATIN
     Dosage: 40 MG
     Route: 065
  4. ATORVASTATIN [Suspect]
     Active Substance: ATORVASTATIN
     Dosage: 10 MG
     Route: 065
  5. CHLORTHALIDONE [Suspect]
     Active Substance: CHLORTHALIDONE
     Indication: Hypertension
     Dosage: 25 MG, QD
     Route: 048
     Dates: end: 202204
  6. CHLORTHALIDONE [Suspect]
     Active Substance: CHLORTHALIDONE
     Dosage: 12.5 MG, QD
     Route: 065
     Dates: start: 202204
  7. LORATADINE [Concomitant]
     Active Substance: LORATADINE
     Indication: Product used for unknown indication
     Dosage: 10 MG TABLET ONCE DAILY
     Dates: start: 20220204
  8. FLIXONASE ALLERGY + HAYFEVER 24 HOUR [Concomitant]
     Indication: Product used for unknown indication
     Dosage: 1 DOSAGE FORM, BID (1 PUFF TWICE DAILY IN EACH NOSTRIL
     Dates: start: 20200812
  9. SEBIZOLE [Concomitant]
     Indication: Product used for unknown indication
     Dosage: AS NEEDED
     Dates: start: 20191112
  10. LOCOID [Concomitant]
     Active Substance: HYDROCORTISONE BUTYRATE
     Indication: Product used for unknown indication
     Dosage: AS NEEDED
  11. DOXAZOSIN [Concomitant]
     Active Substance: DOXAZOSIN MESYLATE
     Indication: Product used for unknown indication
     Dosage: 4 MG TABLETS ONCE DAILY
  12. ASPIRIN [Concomitant]
     Active Substance: ASPIRIN
     Indication: Product used for unknown indication
     Dosage: 100 MG ENTERIC COATED TABLET ONCE DAILY
  13. CANDESARTAN CILEXETIL [Concomitant]
     Active Substance: CANDESARTAN CILEXETIL
     Indication: Product used for unknown indication
     Dosage: 32 MG TABLETS ONCE DAILY
  14. METFORMIN HYDROCHLORIDE\VILDAGLIPTIN [Concomitant]
     Active Substance: METFORMIN HYDROCHLORIDE\VILDAGLIPTIN
     Indication: Product used for unknown indication
     Dosage: ONE TABLET TWICE DAILY
  15. METOPROLOL SUCCINATE [Concomitant]
     Active Substance: METOPROLOL SUCCINATE
     Indication: Product used for unknown indication
     Dosage: 95 MG, CR TABLETS ONCE DAILY

REACTIONS (9)
  - Renal impairment [Recovering/Resolving]
  - Musculoskeletal stiffness [Recovered/Resolved]
  - Decreased appetite [Unknown]
  - Blood pressure decreased [Unknown]
  - Neck pain [Recovered/Resolved]
  - Myalgia [Unknown]
  - Fatigue [Recovered/Resolved]
  - Nausea [Recovered/Resolved]
  - Asthenia [Unknown]

NARRATIVE: CASE EVENT DATE: 20220301
